FAERS Safety Report 6310687-4 (Version None)
Quarter: 2009Q3

REPORT INFORMATION
  Report Type: 
  Country: None (occurrence: None)
  Receive Date: 20090814
  Receipt Date: 20090811
  Transmission Date: 20100115
  Serious: Yes (Other)
  Sender: FDA-Public Use
  Company Number: JP-MERCK-0906USA01659

PATIENT
  Sex: Female
  Weight: 52 kg

DRUGS (8)
  1. PEPCID [Suspect]
     Indication: PROPHYLAXIS AGAINST GASTROINTESTINAL ULCER
     Route: 048
     Dates: start: 20070116, end: 20070801
  2. AMLODIPINE [Suspect]
     Indication: HYPERTENSION
     Route: 048
     Dates: start: 20070116, end: 20071202
  3. FAMOTIDINE [Suspect]
     Indication: PROPHYLAXIS AGAINST GASTROINTESTINAL ULCER
     Route: 048
     Dates: start: 20070802, end: 20071121
  4. SUMIFERON [Concomitant]
     Route: 065
     Dates: start: 20070207, end: 20070510
  5. URSO 250 [Concomitant]
     Route: 065
     Dates: start: 20070116
  6. CALCIUM LACTATE [Concomitant]
     Route: 065
     Dates: start: 20070116
  7. ONEALFA [Concomitant]
     Route: 065
     Dates: start: 20070116
  8. PURSENNID [Concomitant]
     Route: 065
     Dates: start: 20070116, end: 20070801

REACTIONS (1)
  - PARKINSONISM [None]
